FAERS Safety Report 5330559-1 (Version None)
Quarter: 2007Q2

REPORT INFORMATION
  Report Type: 
  Country: None (occurrence: None)
  Receive Date: 20070516
  Receipt Date: 20070507
  Transmission Date: 20071010
  Serious: Yes (Death)
  Sender: FDA-Public Use
  Company Number: 2006AL002505

PATIENT
  Age: 63 Year
  Sex: Female

DRUGS (12)
  1. CITALOPRAM HYDROBROMIDE [Suspect]
     Dosage: 10 MG; QD; PO
     Route: 048
  2. OMEPRAZOLE [Concomitant]
  3. PERINDOPRIL [Concomitant]
  4. ADIZEM-SR [Concomitant]
  5. BECOTIDE [Concomitant]
  6. FRUSEMIDE [Concomitant]
  7. SALBUTAMOL [Concomitant]
  8. SENNA [Concomitant]
  9. VITAMIN B COMPLEX CAP [Concomitant]
  10. PARACETAMOL [Concomitant]
  11. OLANZAPINE [Concomitant]
  12. THIAMINE [Concomitant]

REACTIONS (2)
  - LARYNGEAL OEDEMA [None]
  - SWELLING FACE [None]
